FAERS Safety Report 8758327 (Version 3)
Quarter: 2012Q4

REPORT INFORMATION
  Report Type: 
  Country: CA (occurrence: CA)
  Receive Date: 20120829
  Receipt Date: 20120905
  Transmission Date: 20130627
  Serious: Yes (Hospitalization, Other)
  Sender: FDA-Public Use
  Company Number: PHHY2012CA070361

PATIENT
  Sex: Female

DRUGS (1)
  1. ACLASTA [Suspect]
     Indication: OSTEOPOROSIS
     Route: 042
     Dates: start: 20111012

REACTIONS (10)
  - Infective exacerbation of chronic obstructive airways disease [Unknown]
  - Chronic obstructive pulmonary disease [Unknown]
  - Pulmonary embolism [Unknown]
  - Pneumonia [Unknown]
  - Generalised oedema [Unknown]
  - Malnutrition [Unknown]
  - Biliary colic [Unknown]
  - Hypertension [Unknown]
  - Anaemia [Unknown]
  - Creatinine renal clearance decreased [Unknown]
